FAERS Safety Report 7918367-6 (Version None)
Quarter: 2011Q4

REPORT INFORMATION
  Report Type: 
  Country: None (occurrence: None)
  Receive Date: 20111116
  Receipt Date: 20111107
  Transmission Date: 20120403
  Serious: Yes (Hospitalization)
  Sender: FDA-Public Use
  Company Number: US-ELI_LILLY_AND_COMPANY-US201111003112

PATIENT
  Sex: Female

DRUGS (4)
  1. FENTANYL [Concomitant]
     Indication: PAIN
  2. MOTRIN [Concomitant]
     Indication: PAIN
  3. DILAUDID [Concomitant]
     Indication: PAIN
  4. GEMZAR [Suspect]
     Indication: PANCREATIC CARCINOMA
     Dosage: 1 G, ON DAY 1, 8 AND 15 OF A 21DAY CYCLE
     Dates: start: 20111026

REACTIONS (3)
  - ABDOMINAL PAIN [None]
  - PYREXIA [None]
  - WHITE BLOOD CELL COUNT INCREASED [None]
